FAERS Safety Report 4928782-0 (Version None)
Quarter: 2006Q1

REPORT INFORMATION
  Report Type: 
  Country: None (occurrence: None)
  Receive Date: 20060301
  Receipt Date: 20060220
  Transmission Date: 20060701
  Serious: Yes (Disabling, Congenital Anomaly)
  Sender: FDA-Public Use
  Company Number: SE-ABBOTT-06P-150-0325560-00

PATIENT
  Sex: Male

DRUGS (1)
  1. ERGENYL RETARD [Suspect]
     Indication: DRUG EXPOSURE DURING PREGNANCY
     Route: 064

REACTIONS (4)
  - CEREBRAL HAEMORRHAGE [None]
  - INFECTION IN AN IMMUNOCOMPROMISED HOST [None]
  - PSYCHOMOTOR SKILLS IMPAIRED [None]
  - VISUAL ACUITY REDUCED [None]
